FAERS Safety Report 18630866 (Version 1)
Quarter: 2020Q4

REPORT INFORMATION
  Report Type: Spontaneous
  Country: US (occurrence: US)
  Receive Date: 20201217
  Receipt Date: 20201217
  Transmission Date: 20210114
  Serious: Yes (Hospitalization)
  Sender: FDA-Public Use
  Company Number: US-ELI_LILLY_AND_COMPANY-US202012005262

PATIENT
  Age: 80 Year
  Sex: Female
  Weight: 83.9 kg

DRUGS (19)
  1. LATANOPROST. [Concomitant]
     Active Substance: LATANOPROST
  2. ROSUVASTATIN. [Concomitant]
     Active Substance: ROSUVASTATIN
  3. FUROSEMIDE. [Concomitant]
     Active Substance: FUROSEMIDE
     Dosage: UNK
     Dates: start: 20201208, end: 20201208
  4. LIDOCAINE. [Concomitant]
     Active Substance: LIDOCAINE
  5. GABAPENTIN. [Concomitant]
     Active Substance: GABAPENTIN
  6. INSULIN LISPRO [Concomitant]
     Active Substance: INSULIN LISPRO
  7. BAMLANIVIMAB 700MG [Suspect]
     Active Substance: BAMLANIVIMAB
     Indication: COVID-19
     Dosage: 700 MG, SINGLE
     Route: 042
     Dates: start: 20201207, end: 20201207
  8. METOPROLOL. [Concomitant]
     Active Substance: METOPROLOL
  9. NORMAL SALINE [Concomitant]
     Active Substance: SODIUM CHLORIDE
     Dosage: UNK
     Dates: start: 20201207, end: 20201207
  10. INSULIN GLARGINE [Concomitant]
     Active Substance: INSULIN GLARGINE
  11. METHYLPREDNISOLONE. [Concomitant]
     Active Substance: METHYLPREDNISOLONE
     Dosage: UNK
     Dates: start: 20201207, end: 20201208
  12. IRBESARTAN. [Concomitant]
     Active Substance: IRBESARTAN
  13. INSULIN REGULAR [INSULIN BOVINE] [Concomitant]
     Active Substance: INSULIN BEEF
  14. ONDANSETRON [Concomitant]
     Active Substance: ONDANSETRON
     Dosage: UNK
     Dates: start: 20201207, end: 20201207
  15. VALSARTAN. [Concomitant]
     Active Substance: VALSARTAN
     Dosage: UNK
     Dates: start: 20201208, end: 20201208
  16. ENOXAPARIN [Concomitant]
     Active Substance: ENOXAPARIN
     Dosage: UNK
     Dates: start: 20201207, end: 20201207
  17. HEPARIN [Concomitant]
     Active Substance: HEPARIN SODIUM
     Dosage: UNK
     Dates: start: 20201208, end: 20201208
  18. APIXABAN [Concomitant]
     Active Substance: APIXABAN
     Dosage: UNK
     Dates: start: 20201208
  19. PANTOPRAZOL [PANTOPRAZOLE] [Concomitant]
     Active Substance: PANTOPRAZOLE

REACTIONS (1)
  - Atrial fibrillation [Unknown]

NARRATIVE: CASE EVENT DATE: 20201207
